FAERS Safety Report 7816141-2 (Version None)
Quarter: 2011Q4

REPORT INFORMATION
  Report Type: 
  Country: None (occurrence: None)
  Receive Date: 20111015
  Receipt Date: 20111012
  Transmission Date: 20120403
  Serious: Yes (Hospitalization)
  Sender: FDA-Public Use
  Company Number: IT-ROCHE-1004214

PATIENT
  Sex: Female

DRUGS (11)
  1. PROGRAF [Concomitant]
     Route: 048
  2. CLONAZEPAM [Suspect]
     Dates: start: 20110824, end: 20110902
  3. OLICLINOMEL [Concomitant]
  4. METHYLPREDNISOLONE [Concomitant]
  5. DENIBAN [Concomitant]
     Dates: start: 20110827, end: 20110902
  6. ESCITALOPRAM [Concomitant]
  7. BROMAZEPAM [Suspect]
     Indication: PRODUCT USED FOR UNKNOWN INDICATION
     Route: 048
     Dates: start: 20110819, end: 20110902
  8. CLONAZEPAM [Suspect]
     Indication: PRODUCT USED FOR UNKNOWN INDICATION
     Route: 048
     Dates: start: 20110819, end: 20110821
  9. CEFTAZIDIME [Concomitant]
     Route: 042
  10. TARGOCID [Concomitant]
  11. MERREM [Concomitant]
     Route: 042

REACTIONS (4)
  - GAIT DISTURBANCE [None]
  - TREMOR [None]
  - DYSPHAGIA [None]
  - HYPERTONIA [None]
